FAERS Safety Report 6671094-8 (Version None)
Quarter: 2010Q2

REPORT INFORMATION
  Report Type: 
  Country: None (occurrence: None)
  Receive Date: 20100407
  Receipt Date: 20100325
  Transmission Date: 20101027
  Serious: Yes (Hospitalization)
  Sender: FDA-Public Use
  Company Number: PHHY2010US20621

PATIENT
  Age: 59 Year
  Sex: Male
  Weight: 78.912 kg

DRUGS (1)
  1. GLEEVEC [Suspect]
     Indication: GASTROINTESTINAL STROMAL TUMOUR
     Dosage: 400 MG DAILY
     Route: 048
     Dates: start: 20091210, end: 20100127

REACTIONS (4)
  - BABESIOSIS [None]
  - DIARRHOEA [None]
  - FATIGUE [None]
  - NAUSEA [None]
